FAERS Safety Report 15034351 (Version 1)
Quarter: 2018Q2

REPORT INFORMATION
  Report Type: Spontaneous
  Country: GB (occurrence: GB)
  Receive Date: 20180620
  Receipt Date: 20180620
  Transmission Date: 20180711
  Serious: Yes (Other)
  Sender: FDA-Public Use
  Company Number: GB-TEVA-2018-GB-910287

PATIENT
  Age: 57 Year
  Sex: Male
  Weight: 75 kg

DRUGS (6)
  1. DICLOFENAC SODIUM. [Concomitant]
     Active Substance: DICLOFENAC SODIUM
     Dosage: AFTER FOOD
     Dates: start: 20180130, end: 20180206
  2. IBUPROFEN. [Concomitant]
     Active Substance: IBUPROFEN
     Dosage: 1-2 TDS
     Dates: start: 20180416, end: 20180419
  3. PARACETAMOL [Concomitant]
     Active Substance: ACETAMINOPHEN
     Dates: start: 20171222, end: 20180419
  4. DICLOFENAC [Concomitant]
     Active Substance: DICLOFENAC
     Dosage: AFTER FOOD.
     Dates: start: 20180207, end: 20180409
  5. OMEPRAZOLE. [Concomitant]
     Active Substance: OMEPRAZOLE
     Dates: start: 20180208, end: 20180409
  6. NAPROXEN. [Suspect]
     Active Substance: NAPROXEN
     Dates: start: 20180425

REACTIONS (2)
  - Feeling hot [Recovered/Resolved]
  - Rash [Recovered/Resolved]

NARRATIVE: CASE EVENT DATE: 20180425
